FAERS Safety Report 7844726-6 (Version None)
Quarter: 2011Q4

REPORT INFORMATION
  Report Type: 
  Country: None (occurrence: None)
  Receive Date: 20111019
  Receipt Date: 20111005
  Transmission Date: 20120403
  Serious: Yes (Hospitalization)
  Sender: FDA-Public Use
  Company Number: US-JNJFOC-20110903496

PATIENT
  Age: 45 Year
  Sex: Male
  Weight: 65.7 kg

DRUGS (15)
  1. TRAZODONE (TRAZODONE) UNSPECIFIED [Concomitant]
  2. ACTIQ (FENTANYL CITRATE) UNSPECIFIED [Concomitant]
  3. DACOGEN [Suspect]
     Indication: COLORECTAL CANCER METASTATIC
     Dosage: SEE IMAGE
     Route: 042
     Dates: start: 20110928, end: 20110928
  4. DACOGEN [Suspect]
     Indication: COLORECTAL CANCER METASTATIC
     Dosage: SEE IMAGE
     Route: 042
     Dates: start: 20110729, end: 20110729
  5. DACOGEN [Suspect]
     Indication: COLORECTAL CANCER METASTATIC
     Dosage: SEE IMAGE
     Route: 042
     Dates: start: 20110916, end: 20110916
  6. DACOGEN [Suspect]
     Indication: COLORECTAL CANCER METASTATIC
     Dosage: SEE IMAGE
     Route: 042
     Dates: start: 20110902, end: 20110902
  7. SENNA S (SENOKOT-S) UNSPECIFIED [Concomitant]
  8. CYMBALTA [Concomitant]
  9. RITALIN (METHYLPHENIDATE HYDROCHLORIDE) UNSPECIFIED [Concomitant]
  10. GABAPENTIN (GABAPENTIN) UNSPECIFIED [Concomitant]
  11. AMBIEN (ZOLPIDEM TARTRATE) UNSPECIFIED [Concomitant]
  12. PANITUMUMAB (PANITUMUMAB) UNSPECIFIED [Suspect]
     Indication: COLORECTAL CANCER METASTATIC
     Dosage: 6 MG/KG, 1 IN 2 WEEK ; 6 MG/KG, 1 IN 2 WEEK ; 6 MG/KG, 1 IN 2  WEEK ; 6 MG/KG,1 IN 2 WEEK
     Dates: start: 20110805, end: 20110805
  13. PANITUMUMAB (PANITUMUMAB) UNSPECIFIED [Suspect]
     Indication: COLORECTAL CANCER METASTATIC
     Dosage: 6 MG/KG, 1 IN 2 WEEK ; 6 MG/KG, 1 IN 2 WEEK ; 6 MG/KG, 1 IN 2  WEEK ; 6 MG/KG,1 IN 2 WEEK
     Dates: start: 20110909, end: 20110909
  14. PANITUMUMAB (PANITUMUMAB) UNSPECIFIED [Suspect]
     Indication: COLORECTAL CANCER METASTATIC
     Dosage: 6 MG/KG, 1 IN 2 WEEK ; 6 MG/KG, 1 IN 2 WEEK ; 6 MG/KG, 1 IN 2  WEEK ; 6 MG/KG,1 IN 2 WEEK
     Dates: start: 20110826, end: 20110826
  15. PANITUMUMAB (PANITUMUMAB) UNSPECIFIED [Suspect]
     Indication: COLORECTAL CANCER METASTATIC
     Dosage: 6 MG/KG, 1 IN 2 WEEK ; 6 MG/KG, 1 IN 2 WEEK ; 6 MG/KG, 1 IN 2  WEEK ; 6 MG/KG,1 IN 2 WEEK
     Dates: start: 20110923, end: 20110923

REACTIONS (16)
  - BACTERAEMIA [None]
  - SERRATIA TEST POSITIVE [None]
  - BLOOD CREATINE INCREASED [None]
  - KLEBSIELLA TEST POSITIVE [None]
  - HYPERHIDROSIS [None]
  - OEDEMA PERIPHERAL [None]
  - CITROBACTER TEST POSITIVE [None]
  - PROTEINURIA [None]
  - PYREXIA [None]
  - HYPOTENSION [None]
  - DEEP VEIN THROMBOSIS [None]
  - SYSTEMIC INFLAMMATORY RESPONSE SYNDROME [None]
  - HYPOCALCAEMIA [None]
  - HYPOKALAEMIA [None]
  - CONFUSIONAL STATE [None]
  - ENTEROBACTER TEST POSITIVE [None]
